FAERS Safety Report 13451667 (Version 4)
Quarter: 2020Q1

REPORT INFORMATION
  Report Type: Spontaneous
  Country: US (occurrence: US)
  Receive Date: 20170418
  Receipt Date: 20200219
  Transmission Date: 20200409
  Serious: Yes (Death, Other)
  Sender: FDA-Public Use
  Company Number: US-PFIZER INC-2016385628

PATIENT
  Age: 81 Year
  Sex: Female

DRUGS (16)
  1. LYRICA [Suspect]
     Active Substance: PREGABALIN
     Indication: NEUROPATHY PERIPHERAL
     Dosage: 75 MG, 2X/DAY
     Route: 048
  2. MYRBETRIQ [Concomitant]
     Active Substance: MIRABEGRON
     Indication: URINE ANALYSIS ABNORMAL
     Dosage: 25 MG, 1X/DAY
  3. ZANAFLEX [Concomitant]
     Active Substance: TIZANIDINE HYDROCHLORIDE
     Dosage: 12 MG, AS NEEDED (4 MG TAB; 3 TAB DAILY IF NEEDED)
  4. FIORICET [Concomitant]
     Active Substance: ACETAMINOPHEN\BUTALBITAL\CAFFEINE
     Indication: MIGRAINE
     Dosage: UNK, AS NEEDED
  5. OMEGA 3 ACID ETHYL ESTERS [Concomitant]
     Active Substance: OMEGA-3-ACID ETHYL ESTERS
     Dosage: 2 G, 2X/DAY (1 GM, 2 CAPSULE; 2 TIMES)
  6. TRAVATAN Z [Concomitant]
     Active Substance: TRAVOPROST
     Dosage: 2 GTT, 2X/DAY (ONE DROP TWICE IN EACH EYE AT BED TIME)
     Route: 047
  7. ZYRTEC [Concomitant]
     Active Substance: CETIRIZINE HYDROCHLORIDE
     Dosage: 1 DF, AS NEEDED (1 DAILY)
  8. GLIPIZIDE. [Concomitant]
     Active Substance: GLIPIZIDE
     Indication: BLOOD PRESSURE ABNORMAL
     Dosage: 5 MG, 2X/DAY
  9. DORZOLAMIDE AND TIMOLOL [Concomitant]
     Active Substance: DORZOLAMIDE\TIMOLOL
     Dosage: 1 GTT, 2X/DAY (DORZOLAMIDE: 2%/TIMOLOL: 0.5%; ONE DROP IN RIGHT EYE)
     Route: 047
  10. NUROFEN [Concomitant]
     Active Substance: IBUPROFEN
     Dosage: UNK, AS NEEDED
  11. XANAX [Concomitant]
     Active Substance: ALPRAZOLAM
     Dosage: 0.5 DF, AS NEEDED (0.5 PO TABLET )
     Route: 048
  12. BUMEX [Concomitant]
     Active Substance: BUMETANIDE
     Indication: FLUID IMBALANCE
     Dosage: 1 MG, 1X/DAY
  13. PROMETHAZINE [Concomitant]
     Active Substance: PROMETHAZINE HYDROCHLORIDE
     Indication: NAUSEA
     Dosage: 25 MG, AS NEEDED (EVERY 6 HOURS )
  14. LYRICA [Suspect]
     Active Substance: PREGABALIN
     Dosage: 75 MG, 3X/DAY
     Route: 048
  15. LOSARTAN. [Concomitant]
     Active Substance: LOSARTAN
     Dosage: UNK, 1X/DAY (100-25 MG TAB)
  16. BENADRYL [Concomitant]
     Active Substance: DIPHENHYDRAMINE HYDROCHLORIDE
     Dosage: 1 DF, AS NEEDED

REACTIONS (2)
  - Death [Fatal]
  - Visual acuity reduced [Unknown]
